FAERS Safety Report 5672778-0 (Version None)
Quarter: 2008Q1

REPORT INFORMATION
  Report Type: 
  Country: None (occurrence: None)
  Receive Date: 20080319
  Receipt Date: 20070909
  Transmission Date: 20080703
  Serious: No
  Sender: FDA-Public Use
  Company Number: US-KINGPHARMUSA00001-K200701158

PATIENT

DRUGS (5)
  1. ALTACE [Suspect]
     Indication: STENT PLACEMENT
     Dosage: 1.25 MG, QD
     Route: 048
     Dates: start: 20070401, end: 20070906
  2. LIPITOR [Suspect]
     Indication: STENT PLACEMENT
     Dosage: 40 MG, UNK
     Dates: start: 20070401, end: 20070501
  3. LIPITOR [Suspect]
     Dosage: 20 MG, UNK
     Dates: start: 20070501
  4. PLAVIX [Suspect]
     Indication: STENT PLACEMENT
     Dosage: UNK, UNK
     Dates: start: 20070401
  5. ATENOLOL [Suspect]
     Indication: STENT PLACEMENT
     Dates: start: 20070401

REACTIONS (4)
  - FATIGUE [None]
  - HYPOTENSION [None]
  - INCREASED TENDENCY TO BRUISE [None]
  - MUSCLE SPASMS [None]
